FAERS Safety Report 8877002 (Version 1)
Quarter: 2012Q4

REPORT INFORMATION
  Report Type: Spontaneous
  Country: US (occurrence: None)
  Receive Date: 20121024
  Receipt Date: 20121024
  Transmission Date: 20130627
  Serious: Yes (Other)
  Sender: FDA-Public Use
  Company Number: US-1194648

PATIENT
  Age: 86 Year
  Sex: Female
  Weight: 61.69 kg

DRUGS (1)
  1. TRAVATAN Z [Suspect]
     Indication: INTRAOCULAR PRESSURE INCREASED
     Route: 047
     Dates: start: 2007

REACTIONS (2)
  - Uveitis [None]
  - Iritis [None]
